FAERS Safety Report 25052544 (Version 1)
Quarter: 2025Q1

REPORT INFORMATION
  Report Type: Spontaneous
  Country: CH (occurrence: CH)
  Receive Date: 20250307
  Receipt Date: 20250307
  Transmission Date: 20250408
  Serious: Yes (Other)
  Sender: ELI LILLY AND COMPANY
  Company Number: None

PATIENT
  Age: 46 Year
  Sex: Female
  Weight: 84 kg

DRUGS (6)
  1. ABEMACICLIB [Interacting]
     Active Substance: ABEMACICLIB
     Indication: Breast cancer
     Dosage: 100 MG, BID
     Route: 048
     Dates: start: 20250121
  2. TAMOXIFEN [Interacting]
     Active Substance: TAMOXIFEN
     Indication: Breast cancer
     Dosage: 20 MG, DAILY
     Route: 048
     Dates: start: 202405, end: 20250125
  3. TAMOXIFEN [Interacting]
     Active Substance: TAMOXIFEN
     Dosage: 20 MG, DAILY
     Route: 048
     Dates: start: 20250126
  4. VENLAFAXINE [Concomitant]
     Active Substance: VENLAFAXINE HYDROCHLORIDE
     Indication: Depression
     Dosage: 225 MG, DAILY
     Route: 048
     Dates: start: 202401
  5. LEUPROLIDE ACETATE [Concomitant]
     Active Substance: LEUPROLIDE ACETATE
     Indication: Breast cancer
     Route: 058
     Dates: start: 2024
  6. MAGNESIUM DIASPORAL [MAGNESIUM CITRATE] [Concomitant]
     Indication: Sleep disorder
     Route: 048

REACTIONS (4)
  - Dyspnoea [Recovered/Resolved]
  - Palpitations [Recovered/Resolved]
  - Fatigue [Recovered/Resolved]
  - Drug interaction [Recovered/Resolved]

NARRATIVE: CASE EVENT DATE: 20250121
